FAERS Safety Report 6352739-9 (Version None)
Quarter: 2009Q3

REPORT INFORMATION
  Report Type: 
  Country: None (occurrence: None)
  Receive Date: 20090912
  Receipt Date: 20090622
  Transmission Date: 20100115
  Serious: No
  Sender: FDA-Public Use
  Company Number: US-ABBOTT-08P-163-0444112-00

PATIENT
  Sex: Male
  Weight: 149.82 kg

DRUGS (6)
  1. HUMIRA [Suspect]
     Indication: PSORIASIS
     Route: 058
     Dates: start: 20080101
  2. LEFLUNOMIDE [Concomitant]
     Indication: PSORIASIS
     Route: 048
     Dates: start: 20080301, end: 20080501
  3. HYDROXYCHLOROQUINE SULFATE [Concomitant]
     Indication: PSORIASIS
     Route: 048
     Dates: start: 20070901
  4. INSULIN [Concomitant]
     Indication: DIABETES MELLITUS
     Route: 048
  5. RANITIDINE HYDROCHLORIDE [Concomitant]
     Indication: GASTRIC ULCER
  6. ANTIHYPERTENSIVES [Concomitant]
     Indication: HYPERTENSION
     Route: 048

REACTIONS (6)
  - DRUG DELIVERY SYSTEM MALFUNCTION [None]
  - DRUG INEFFECTIVE [None]
  - INCORRECT DOSE ADMINISTERED [None]
  - INJECTION SITE HAEMATOMA [None]
  - INJECTION SITE SWELLING [None]
  - PSORIASIS [None]
